FAERS Safety Report 19429819 (Version 1)
Quarter: 2021Q2

REPORT INFORMATION
  Report Type: Spontaneous
  Country: TR (occurrence: TR)
  Receive Date: 20210617
  Receipt Date: 20210617
  Transmission Date: 20210717
  Serious: Yes (Other)
  Sender: FDA-Public Use
  Company Number: NVSC2020TR350116

PATIENT
  Sex: Male

DRUGS (1)
  1. TRILEPTAL [Suspect]
     Active Substance: OXCARBAZEPINE
     Indication: EPILEPSY
     Dosage: 600 MG (FOR 3 MONTHS)
     Route: 065

REACTIONS (6)
  - Loss of consciousness [Unknown]
  - Road traffic accident [Unknown]
  - Paralysis [Unknown]
  - Product supply issue [Unknown]
  - Epilepsy [Unknown]
  - Micturition urgency [Unknown]

NARRATIVE: CASE EVENT DATE: 2001
